FAERS Safety Report 6345990-5 (Version None)
Quarter: 2009Q3

REPORT INFORMATION
  Report Type: 
  Country: None (occurrence: None)
  Receive Date: 20090909
  Receipt Date: 20090903
  Transmission Date: 20100115
  Serious: Yes (Other)
  Sender: FDA-Public Use
  Company Number: GB-JNJFOC-20090804478

PATIENT
  Sex: Male

DRUGS (2)
  1. HALDOL [Suspect]
     Indication: AGITATION
     Route: 030
     Dates: start: 20090811, end: 20090812
  2. LORAZEPAM [Concomitant]
     Indication: AGITATION
     Route: 065

REACTIONS (3)
  - ALANINE AMINOTRANSFERASE INCREASED [None]
  - BLOOD BILIRUBIN INCREASED [None]
  - HYPONATRAEMIA [None]
